FAERS Safety Report 24938205 (Version 1)
Quarter: 2025Q1

REPORT INFORMATION
  Report Type: Spontaneous
  Country: JP (occurrence: JP)
  Receive Date: 20250206
  Receipt Date: 20250206
  Transmission Date: 20250408
  Serious: Yes (Other)
  Sender: REGENERON
  Company Number: JP-REGENERON-20250200025

PATIENT
  Sex: Female

DRUGS (1)
  1. LIBTAYO [Suspect]
     Active Substance: CEMIPLIMAB-RWLC
     Indication: Cervix carcinoma recurrent

REACTIONS (5)
  - Hyperthyroidism [Unknown]
  - Hypothyroidism [Unknown]
  - Nephrotic syndrome [Unknown]
  - Nephrosclerosis [Unknown]
  - Orthostatic hypotension [Unknown]
